FAERS Safety Report 6501629-7 (Version None)
Quarter: 2009Q4

REPORT INFORMATION
  Report Type: 
  Country: None (occurrence: None)
  Receive Date: 20091216
  Receipt Date: 20091210
  Transmission Date: 20100525
  Serious: Yes (Death, Life-Threatening, Other)
  Sender: FDA-Public Use
  Company Number: US-ELI_LILLY_AND_COMPANY-US200912002596

PATIENT
  Sex: Female

DRUGS (1)
  1. HUMALOG [Suspect]
     Indication: TYPE 1 DIABETES MELLITUS
     Route: 058
     Dates: start: 19860101

REACTIONS (8)
  - BLOOD GLUCOSE DECREASED [None]
  - BRAIN DEATH [None]
  - COMA [None]
  - DIABETIC KETOACIDOSIS [None]
  - EYE ROLLING [None]
  - HYPOVOLAEMIA [None]
  - HYPOXIC ENCEPHALOPATHY [None]
  - RESPIRATORY ARREST [None]
